FAERS Safety Report 22607925 (Version 2)
Quarter: 2023Q2

REPORT INFORMATION
  Report Type: Report from Study
  Country: DE (occurrence: DE)
  Receive Date: 20230616
  Receipt Date: 20230627
  Transmission Date: 20230722
  Serious: Yes (Hospitalization)
  Sender: FDA-Public Use
  Company Number: DE-002147023-NVSC2023DE128026

PATIENT
  Age: 53 Year
  Sex: Female

DRUGS (4)
  1. FEMARA [Suspect]
     Active Substance: LETROZOLE
     Indication: HER2 negative breast cancer
     Dosage: 2.5 MG
     Route: 048
     Dates: start: 20200811
  2. GOSERELIN [Suspect]
     Active Substance: GOSERELIN
     Indication: HER2 negative breast cancer
     Dosage: 3.6 MG
     Route: 058
     Dates: start: 20200811
  3. CARBIMAZOLE [Concomitant]
     Active Substance: CARBIMAZOLE
     Indication: Graves^ disease
     Dosage: 10 MG
     Route: 065
     Dates: start: 20220812
  4. IBUPROFEN [Concomitant]
     Active Substance: IBUPROFEN
     Indication: Back pain
     Dosage: 600 MG
     Route: 065
     Dates: start: 202302

REACTIONS (1)
  - Pathological fracture [Not Recovered/Not Resolved]

NARRATIVE: CASE EVENT DATE: 20230604
